FAERS Safety Report 24568358 (Version 1)
Quarter: 2024Q4

REPORT INFORMATION
  Report Type: Spontaneous
  Country: PL (occurrence: PL)
  Receive Date: 20241031
  Receipt Date: 20241031
  Transmission Date: 20250115
  Serious: Yes (Hospitalization, Other)
  Sender: AMGEN
  Company Number: PL-AMGEN-POLSP2024211028

PATIENT
  Age: 42 Year
  Sex: Female
  Weight: 60 kg

DRUGS (13)
  1. NPLATE [Suspect]
     Active Substance: ROMIPLOSTIM
     Indication: Immune thrombocytopenia
     Dosage: 1 MCG/KG
     Route: 065
  2. NPLATE [Suspect]
     Active Substance: ROMIPLOSTIM
     Dosage: 9 MCG/KG
     Route: 065
  3. RITUXIMAB [Concomitant]
     Active Substance: RITUXIMAB
     Indication: Product used for unknown indication
     Dosage: UNK
     Route: 065
  4. LEVOTHYROXINE [Concomitant]
     Active Substance: LEVOTHYROXINE
     Dosage: 25 MICROGRAM
  5. AVATROMBOPAG [Concomitant]
     Active Substance: AVATROMBOPAG
     Dosage: 40 MILLIGRAM
  6. DEXAMETHASONE [Concomitant]
     Active Substance: DEXAMETHASONE
  7. ELTROMBOPAG [Concomitant]
     Active Substance: ELTROMBOPAG
  8. AZATHIOPRINE [Concomitant]
     Active Substance: AZATHIOPRINE
  9. FOSTAMATINIB [Concomitant]
     Active Substance: FOSTAMATINIB
  10. CYCLOSPORINE [Concomitant]
     Active Substance: CYCLOSPORINE
  11. CYCLOPHOSPHAMIDE [Concomitant]
     Active Substance: CYCLOPHOSPHAMIDE
  12. DANAZOL [Concomitant]
     Active Substance: DANAZOL
  13. MYCOPHENOLATE MOFETIL [Concomitant]
     Active Substance: MYCOPHENOLATE MOFETIL

REACTIONS (2)
  - Unevaluable event [Unknown]
  - Platelet count decreased [Unknown]
